FAERS Safety Report 4325509-0 (Version None)
Quarter: 2004Q1

REPORT INFORMATION
  Report Type: 
  Country: None (occurrence: None)
  Receive Date: 20040324
  Receipt Date: 20040315
  Transmission Date: 20041129
  Serious: Yes (Other)
  Sender: FDA-Public Use
  Company Number: 2004196875GB

PATIENT
  Age: 62 Year
  Sex: Male
  Weight: 75 kg

DRUGS (4)
  1. SULFASALAZINE [Suspect]
     Indication: CROHN'S DISEASE
     Dosage: 4 G/DAY, ORAL
     Route: 048
     Dates: start: 19910101
  2. DICLOFENAC SODIUM [Suspect]
     Indication: ARTHRALGIA
     Dosage: 75MG/DAY, ORAL
     Route: 048
  3. RANITIDINE [Suspect]
     Dosage: 150 MG, BID, ORAL
     Route: 048
  4. DICLOFENAC SODIUM [Concomitant]

REACTIONS (2)
  - ATRIAL FIBRILLATION [None]
  - IRON DEFICIENCY ANAEMIA [None]
